FAERS Safety Report 19739436 (Version 1)
Quarter: 2021Q3

REPORT INFORMATION
  Report Type: Spontaneous
  Country: US (occurrence: US)
  Receive Date: 20210820
  Receipt Date: 20210820
  Transmission Date: 20211014
  Serious: No
  Sender: FDA-Public Use
  Company Number: None

PATIENT

DRUGS (1)
  1. IV REGULAR INSULIN [Suspect]
     Active Substance: INSULIN NOS

REACTIONS (4)
  - Wrong technique in device usage process [None]
  - Blood glucose decreased [None]
  - Product preparation error [None]
  - Product administration error [None]
